FAERS Safety Report 19861797 (Version 1)
Quarter: 2021Q3

REPORT INFORMATION
  Report Type: Spontaneous
  Country: US (occurrence: US)
  Receive Date: 20210920
  Receipt Date: 20210920
  Transmission Date: 20211014
  Serious: Yes (Hospitalization, Other)
  Sender: FDA-Public Use
  Company Number: US-ANIPHARMA-2021-US-019256

PATIENT
  Age: 37 Year
  Sex: Female

DRUGS (1)
  1. LACTULOSE (NON?SPECIFIC) [Suspect]
     Active Substance: LACTULOSE
     Indication: ENCEPHALOPATHY

REACTIONS (1)
  - Pneumatosis intestinalis [Recovered/Resolved]
